FAERS Safety Report 11569585 (Version 1)
Quarter: 2015Q3

REPORT INFORMATION
  Report Type: Spontaneous
  Country: US (occurrence: None)
  Receive Date: 20150928
  Receipt Date: 20150928
  Transmission Date: 20151125
  Serious: No
  Sender: FDA-Public Use
  Company Number: None

PATIENT
  Age: 33 Year
  Sex: Male
  Weight: 64.86 kg

DRUGS (1)
  1. ZURIQ-FEBUXOSTAT 40MG CADILA [Suspect]
     Active Substance: FEBUXOSTAT
     Indication: BLOOD URIC ACID INCREASED
     Dates: end: 20150926

REACTIONS (2)
  - Thrombocytopenia [None]
  - Rash pruritic [None]

NARRATIVE: CASE EVENT DATE: 20150926
